FAERS Safety Report 14101366 (Version 1)
Quarter: 2017Q4

REPORT INFORMATION
  Report Type: Report from Study
  Country: US (occurrence: US)
  Receive Date: 20171018
  Receipt Date: 20171018
  Transmission Date: 20180321
  Serious: Yes (Death, Other)
  Sender: FDA-Public Use
  Company Number: US-ROCHE-2008007

PATIENT

DRUGS (1)
  1. RITUXIMAB. [Suspect]
     Active Substance: RITUXIMAB
     Indication: GRAFT VERSUS HOST DISEASE
     Route: 042

REACTIONS (6)
  - Hypokalaemia [Unknown]
  - Thrombotic thrombocytopenic purpura [Fatal]
  - Cerebral infarction [Fatal]
  - Hyponatraemia [Unknown]
  - Multiple organ dysfunction syndrome [Fatal]
  - Haemorrhage [Fatal]

NARRATIVE: CASE EVENT DATE: 20110514
